FAERS Safety Report 8895764 (Version 1)
Quarter: 2012Q4

REPORT INFORMATION
  Report Type: Report from Study
  Country: DE (occurrence: DE)
  Receive Date: 20121108
  Receipt Date: 20121108
  Transmission Date: 20130627
  Serious: Yes (Hospitalization)
  Sender: FDA-Public Use
  Company Number: DE-ROCHE-1150158

PATIENT
  Sex: Male
  Weight: 85 kg

DRUGS (5)
  1. TRASTUZUMAB [Suspect]
     Indication: METASTATIC GASTRIC CANCER
     Route: 042
  2. TRASTUZUMAB [Suspect]
     Dosage: 10th cycle
     Route: 042
     Dates: start: 20120425
  3. CISPLATIN [Concomitant]
     Indication: METASTATIC GASTRIC CANCER
  4. 5-FU [Concomitant]
     Indication: METASTATIC GASTRIC CANCER
  5. INNOHEP [Concomitant]
     Indication: DEEP VEIN THROMBOSIS
     Route: 065

REACTIONS (5)
  - Renal failure [Recovered/Resolved]
  - Hypovolaemia [Recovered/Resolved]
  - Hyponatraemia [Recovered/Resolved]
  - Hypokalaemia [Recovered/Resolved]
  - Diarrhoea [Recovered/Resolved]
